FAERS Safety Report 14611440 (Version 2)
Quarter: 2018Q2

REPORT INFORMATION
  Report Type: Spontaneous
  Country: GB (occurrence: GB)
  Receive Date: 20180308
  Receipt Date: 20180410
  Transmission Date: 20180711
  Serious: Yes (Other)
  Sender: FDA-Public Use
  Company Number: GB-009507513-1802GBR013108

PATIENT
  Age: 79 Year
  Sex: Male
  Weight: 73 kg

DRUGS (12)
  1. CLINITAS SOOTHE [Concomitant]
     Dosage: RIGHT EYE 3-6 TIMES/DAY
     Route: 050
     Dates: start: 20170622
  2. ACETAMINOPHEN. [Concomitant]
     Active Substance: ACETAMINOPHEN
     Dosage: FOUR TIMES A DAY ; AS NECESSARY
     Dates: start: 20160727
  3. ASPIRIN. [Concomitant]
     Active Substance: ASPIRIN
     Dosage: 1 DF, QD
     Dates: start: 20160727
  4. BRINZOLAMIDE [Concomitant]
     Active Substance: BRINZOLAMIDE
     Dosage: RIGHT EYE
     Route: 050
     Dates: start: 20160727
  5. FINASTERIDE. [Suspect]
     Active Substance: FINASTERIDE
     Dosage: UNK
     Dates: start: 20170919
  6. ATORVASTATIN [Concomitant]
     Active Substance: ATORVASTATIN
     Dosage: 1DF,QD, NIGHT
     Dates: start: 20160727
  7. ACYCLOVIR. [Concomitant]
     Active Substance: ACYCLOVIR
     Dosage: 1 DF, QD
     Dates: start: 20160727
  8. LISINOPRIL. [Concomitant]
     Active Substance: LISINOPRIL
     Dosage: 1 DF, QD, NIGHT
     Dates: start: 20160727
  9. RANITIDINE. [Concomitant]
     Active Substance: RANITIDINE
     Dosage: 2 DF, QD
     Dates: start: 20160727
  10. DOMPERIDONE [Concomitant]
     Active Substance: DOMPERIDONE
     Dosage: THREE TIMES DAILY ; AS NECESSARY
     Dates: start: 20160727
  11. TAMSULOSIN HYDROCHLORIDE. [Concomitant]
     Active Substance: TAMSULOSIN HYDROCHLORIDE
     Dosage: 1 DF, QD
     Dates: start: 20160727
  12. PREDSOL [Concomitant]
     Active Substance: PREDNISOLONE
     Dosage: TO RIGHT EYE
     Route: 047
     Dates: start: 20161208

REACTIONS (1)
  - Blood cholesterol increased [Unknown]

NARRATIVE: CASE EVENT DATE: 20171117
